FAERS Safety Report 21062394 (Version 2)
Quarter: 2022Q4

REPORT INFORMATION
  Report Type: Other
  Country: US (occurrence: US)
  Receive Date: 20220711
  Receipt Date: 20221212
  Transmission Date: 20230112
  Serious: No
  Sender: FDA-Public Use
  Company Number: US-GBT-013971

PATIENT
  Sex: Female

DRUGS (1)
  1. OXBRYTA [Suspect]
     Active Substance: VOXELOTOR
     Indication: Sickle cell disease
     Dosage: STRENGTH :500 MG TABLETS.
     Route: 048

REACTIONS (4)
  - Off label use [Unknown]
  - Therapy cessation [Unknown]
  - Abdominal pain [Unknown]
  - Nausea [Unknown]
